FAERS Safety Report 7985465-0 (Version None)
Quarter: 2011Q4

REPORT INFORMATION
  Report Type: 
  Country: None (occurrence: None)
  Receive Date: 20111216
  Receipt Date: 20111207
  Transmission Date: 20120403
  Serious: Yes (Hospitalization)
  Sender: FDA-Public Use
  Company Number: US-ROCHE-1019556

PATIENT
  Sex: Female

DRUGS (12)
  1. FLOVENT [Concomitant]
     Indication: ASTHMA
  2. VITAMIN D [Concomitant]
  3. OMALIZUMAB [Suspect]
     Indication: ASTHMA
     Route: 058
     Dates: start: 20111026
  4. VITAMIN AND MINERAL PRENATAL SUPPLEMENT W/ FOLIC ACID CAP [Concomitant]
     Indication: PREGNANCY
  5. SINGULAIR [Concomitant]
     Indication: ASTHMA
  6. IRON [Concomitant]
     Indication: ANAEMIA
  7. CALCIUM [Concomitant]
  8. PREDNISONE TAB [Concomitant]
     Indication: ASTHMA
  9. ALBUTEROL [Concomitant]
     Indication: ASTHMA
  10. VITAMIN B-12 [Concomitant]
  11. IRON NOS [Concomitant]
     Indication: ANAEMIA
  12. ADVAIR DISKUS 100/50 [Concomitant]
     Indication: ASTHMA

REACTIONS (2)
  - MATERNAL EXPOSURE DURING PREGNANCY [None]
  - ASTHMA [None]
